FAERS Safety Report 10220636 (Version 1)
Quarter: 2014Q2

REPORT INFORMATION
  Report Type: Spontaneous
  Country: US (occurrence: None)
  Receive Date: 20140604
  Receipt Date: 20140604
  Transmission Date: 20141212
  Serious: Yes (Other)
  Sender: FDA-Public Use
  Company Number: 2371676

PATIENT
  Sex: 0

DRUGS (1)
  1. LIDOCAINE HCL [Suspect]
     Indication: SURGERY
     Dates: start: 20140508

REACTIONS (4)
  - Device breakage [None]
  - Foreign body [None]
  - Procedural complication [None]
  - Removal of foreign body [None]
